FAERS Safety Report 9157126 (Version 1)
Quarter: 2013Q1

REPORT INFORMATION
  Report Type: Spontaneous
  Country: DE (occurrence: DE)
  Receive Date: 20130312
  Receipt Date: 20130312
  Transmission Date: 20140127
  Serious: Yes (Death)
  Sender: FDA-Public Use
  Company Number: DE-BAYER-2013-027800

PATIENT
  Age: 72 Year
  Sex: 0
  Weight: 67.3 kg

DRUGS (2)
  1. NEXAVAR [Suspect]
     Dosage: 200 MG, BID
     Route: 048
     Dates: start: 20121016
  2. NEXAVAR [Suspect]
     Dosage: 400 MG, BID
     Route: 048
     Dates: start: 201211

REACTIONS (1)
  - Hepatocellular carcinoma [Fatal]
